FAERS Safety Report 6157123-9 (Version None)
Quarter: 2009Q2

REPORT INFORMATION
  Report Type: 
  Country: None (occurrence: None)
  Receive Date: 20090416
  Receipt Date: 20090407
  Transmission Date: 20091009
  Serious: Yes (Hospitalization)
  Sender: FDA-Public Use
  Company Number: FR-WYE-H08535109

PATIENT
  Sex: Male

DRUGS (7)
  1. CORDARONE [Suspect]
     Indication: ATRIAL FIBRILLATION
     Route: 048
  2. RAMIPRIL [Concomitant]
     Dosage: UNSPECIFIED
     Route: 048
  3. PREVISCAN [Concomitant]
     Dosage: UNSPECIFIED
     Route: 048
  4. DIAMICRON [Concomitant]
     Dosage: UNSPECIFIED
     Route: 048
  5. METFORMIN HCL [Concomitant]
     Dosage: UNSPECIFIED
     Route: 048
  6. MONO-TILDIEM - SLOW RELEASE [Interacting]
     Route: 048
     Dates: end: 20090210
  7. ESIDRIX [Concomitant]
     Dosage: UNSPECIFIED
     Route: 048

REACTIONS (2)
  - DRUG INTERACTION [None]
  - FALL [None]
